FAERS Safety Report 15885931 (Version 1)
Quarter: 2019Q1

REPORT INFORMATION
  Report Type: Spontaneous
  Country: US (occurrence: US)
  Receive Date: 20190129
  Receipt Date: 20190129
  Transmission Date: 20190417
  Serious: No
  Sender: FDA-Public Use
  Company Number: US-UNITED THERAPEUTICS-UNT-2019-000688

PATIENT
  Age: 34 Year
  Sex: Female
  Weight: 72.56 kg

DRUGS (3)
  1. OXYGEN. [Concomitant]
     Active Substance: OXYGEN
     Indication: PRODUCT USED FOR UNKNOWN INDICATION
     Route: 065
  2. REVATIO [Concomitant]
     Active Substance: SILDENAFIL CITRATE
     Indication: PRODUCT USED FOR UNKNOWN INDICATION
     Route: 065
  3. REMODULIN [Suspect]
     Active Substance: TREPROSTINIL
     Indication: PULMONARY ARTERIAL HYPERTENSION
     Dosage: 0.01 ?G/KG, CONTINUING
     Route: 058
     Dates: start: 20190107

REACTIONS (9)
  - Infusion site erythema [Unknown]
  - Infusion site pain [Unknown]
  - Dizziness [Unknown]
  - Pain in jaw [Unknown]
  - Infusion site discomfort [Unknown]
  - Frequent bowel movements [Unknown]
  - Infusion site discolouration [Unknown]
  - Dizziness postural [Unknown]
  - Infusion site discharge [Unknown]

NARRATIVE: CASE EVENT DATE: 201901
